FAERS Safety Report 5286242-4 (Version None)
Quarter: 2007Q1

REPORT INFORMATION
  Report Type: 
  Country: None (occurrence: None)
  Receive Date: 20070329
  Receipt Date: 20070319
  Transmission Date: 20070707
  Serious: Yes (Other)
  Sender: FDA-Public Use
  Company Number: SU-2007-006043

PATIENT

DRUGS (1)
  1. WELCHOL [Suspect]
     Indication: DRUG USE FOR UNKNOWN INDICATION
     Dosage: MG PO
     Route: 048

REACTIONS (1)
  - ALANINE AMINOTRANSFERASE INCREASED [None]
